FAERS Safety Report 22882459 (Version 3)
Quarter: 2023Q4

REPORT INFORMATION
  Report Type: Spontaneous
  Country: US (occurrence: US)
  Receive Date: 20230830
  Receipt Date: 20231025
  Transmission Date: 20240109
  Serious: Yes (Other)
  Sender: FDA-Public Use
  Company Number: US-AUROBINDO-AUR-APL-2023-055124

PATIENT
  Age: 25 Year
  Sex: Female
  Weight: 53.061 kg

DRUGS (2)
  1. ECONTRA ONE-STEP [Suspect]
     Active Substance: LEVONORGESTREL
     Indication: Post coital contraception
     Dosage: UNK UNK, TWO TIMES A DAY
     Route: 048
     Dates: start: 20230812
  2. ECONTRA ONE-STEP [Suspect]
     Active Substance: LEVONORGESTREL
     Dosage: UNK
     Route: 065
     Dates: start: 20230816

REACTIONS (5)
  - Haemorrhage [Not Recovered/Not Resolved]
  - Drug ineffective [Unknown]
  - Heavy menstrual bleeding [Not Recovered/Not Resolved]
  - Vaginal ring placement [Not Recovered/Not Resolved]
  - Inappropriate schedule of product administration [Unknown]

NARRATIVE: CASE EVENT DATE: 20230812
